FAERS Safety Report 4335944-2 (Version None)
Quarter: 2004Q1

REPORT INFORMATION
  Report Type: 
  Country: None (occurrence: None)
  Receive Date: 20040329
  Receipt Date: 20031121
  Transmission Date: 20041129
  Serious: No
  Sender: FDA-Public Use
  Company Number: USA031153183

PATIENT
  Age: 44 Year
  Sex: Male
  Weight: 91 kg

DRUGS (3)
  1. STRATTERA [Suspect]
     Indication: ATTENTION DEFICIT/HYPERACTIVITY DISORDER
     Dosage: 40 MG/DAY
     Dates: start: 20031119
  2. LISINOPRIL [Concomitant]
  3. EASPRIN (ACETYLSALICYCLIC ACID) [Concomitant]

REACTIONS (4)
  - DECREASED APPETITE [None]
  - ERECTILE DYSFUNCTION [None]
  - FEELING ABNORMAL [None]
  - HYPERHIDROSIS [None]
